FAERS Safety Report 24594406 (Version 2)
Quarter: 2024Q4

REPORT INFORMATION
  Report Type: Spontaneous
  Country: US (occurrence: US)
  Receive Date: 20241108
  Receipt Date: 20241111
  Transmission Date: 20250114
  Serious: No
  Sender: NOVARTIS
  Company Number: US-002147023-NVSC2024US216652

PATIENT
  Sex: Female

DRUGS (1)
  1. LEQVIO [Suspect]
     Active Substance: INCLISIRAN SODIUM
     Indication: Blood cholesterol increased
     Dosage: UNK UNK, OTHER
     Route: 058

REACTIONS (6)
  - Pain in extremity [Unknown]
  - Mental status changes [Unknown]
  - Memory impairment [Unknown]
  - Vision blurred [Unknown]
  - Urinary tract infection [Unknown]
  - Alopecia [Unknown]
